FAERS Safety Report 8950543 (Version 1)
Quarter: 2012Q4

REPORT INFORMATION
  Report Type: 
  Country: US (occurrence: US)
  Receive Date: 20121207
  Receipt Date: 20121207
  Transmission Date: 20130627
  Serious: Yes (Other)
  Sender: FDA-Public Use
  Company Number: US-BAYER-2012-125884

PATIENT
  Sex: Female

DRUGS (1)
  1. MIRENA [Suspect]
     Dosage: 20 mcg/24hr, CONT
     Route: 015
     Dates: end: 20121128

REACTIONS (10)
  - Device dislocation [None]
  - Genital haemorrhage [None]
  - Abdominal pain lower [None]
  - Anger [None]
  - Mood swings [None]
  - Insomnia [None]
  - Anxiety [None]
  - Complication of device insertion [None]
  - Procedural pain [None]
  - Complication of device removal [None]
